FAERS Safety Report 18769755 (Version 2)
Quarter: 2021Q1

REPORT INFORMATION
  Report Type: Spontaneous
  Country: NL (occurrence: NL)
  Receive Date: 20210121
  Receipt Date: 20210219
  Transmission Date: 20210419
  Serious: Yes (Hospitalization)
  Sender: FDA-Public Use
  Company Number: NL-TEVA-2021-NL-1869514

PATIENT
  Age: 87 Year
  Sex: Female

DRUGS (5)
  1. METHOTREXATE. [Suspect]
     Active Substance: METHOTREXATE
     Indication: RHEUMATOID ARTHRITIS
     Route: 058
  2. VALACICLOVIR [Suspect]
     Active Substance: VALACYCLOVIR HYDROCHLORIDE
     Indication: HERPES ZOSTER
     Dosage: 3000 MILLIGRAM DAILY; THREE TIMES PER DAY BY MOUTH
     Route: 048
  3. HYDROXYCHLOROQUINE [Concomitant]
     Active Substance: HYDROXYCHLOROQUINE
     Indication: RHEUMATOID ARTHRITIS
     Dosage: 200 MILLIGRAM DAILY; BY MOUTH
     Route: 048
  4. APIXABAN [Concomitant]
     Active Substance: APIXABAN
     Indication: SUBDURAL HAEMATOMA
     Route: 065
  5. ACYCLOVIR. [Concomitant]
     Active Substance: ACYCLOVIR
     Indication: HERPES ZOSTER
     Dosage: EYE OINTMENT
     Route: 047

REACTIONS (4)
  - Herpes zoster [Recovering/Resolving]
  - Keratitis [Recovering/Resolving]
  - Fall [Unknown]
  - Diarrhoea [Unknown]
